FAERS Safety Report 6152196-1 (Version None)
Quarter: 2009Q2

REPORT INFORMATION
  Report Type: 
  Country: None (occurrence: None)
  Receive Date: 20090410
  Receipt Date: 20080721
  Transmission Date: 20091009
  Serious: No
  Sender: FDA-Public Use
  Company Number: US-ASTRAZENECA-2008UW15095

PATIENT
  Age: 77 Year
  Sex: Female
  Weight: 72.6 kg

DRUGS (2)
  1. TENORMIN [Suspect]
     Indication: HYPERTENSION
     Route: 048
     Dates: end: 20040101
  2. DIOVAN [Concomitant]

REACTIONS (1)
  - HEART RATE INCREASED [None]
